FAERS Safety Report 6252840-4 (Version None)
Quarter: 2009Q2

REPORT INFORMATION
  Report Type: 
  Country: None (occurrence: None)
  Receive Date: 20090629
  Receipt Date: 20090629
  Transmission Date: 20091009
  Serious: Yes (Other)
  Sender: FDA-Public Use
  Company Number: None

PATIENT
  Age: 3 Year
  Sex: Male
  Weight: 38.5 kg

DRUGS (2)
  1. TAMIFLU [Suspect]
     Indication: INFLUENZA
     Dosage: 3/4 TSP EVERY 12 HOURS PO
     Route: 048
     Dates: start: 20090618, end: 20090620
  2. CHILDREN'S MOTRIN [Concomitant]

REACTIONS (7)
  - AGITATION [None]
  - COORDINATION ABNORMAL [None]
  - DIARRHOEA [None]
  - DISTURBANCE IN ATTENTION [None]
  - DIZZINESS [None]
  - FATIGUE [None]
  - PSYCHOMOTOR HYPERACTIVITY [None]
